FAERS Safety Report 19810672 (Version 1)
Quarter: 2021Q3

REPORT INFORMATION
  Report Type: Spontaneous
  Country: JP (occurrence: JP)
  Receive Date: 20210909
  Receipt Date: 20210909
  Transmission Date: 20211014
  Serious: Yes (Hospitalization)
  Sender: FDA-Public Use
  Company Number: JP-VALIDUS PHARMACEUTICALS LLC-JP-VDP-2020-001203

PATIENT
  Age: 46 Year
  Sex: Female

DRUGS (2)
  1. LASIX [Suspect]
     Active Substance: FUROSEMIDE
     Indication: CARDIAC FAILURE CHRONIC
     Dosage: UNK
     Route: 048
  2. LANSOPRAZOLE. [Suspect]
     Active Substance: LANSOPRAZOLE
     Indication: GASTRIC ULCER
     Dosage: UNK
     Route: 048

REACTIONS (5)
  - Hypocalcaemia [Recovering/Resolving]
  - Hypoaesthesia [Recovering/Resolving]
  - Tetany [Recovering/Resolving]
  - Electrolyte imbalance [Recovering/Resolving]
  - Hypomagnesaemia [Recovering/Resolving]
